FAERS Safety Report 7680109-X (Version None)
Quarter: 2011Q3

REPORT INFORMATION
  Report Type: 
  Country: None (occurrence: None)
  Receive Date: 20110812
  Receipt Date: 20110801
  Transmission Date: 20111222
  Serious: Yes (Other)
  Sender: FDA-Public Use
  Company Number: FR-ROCHE-794755

PATIENT
  Sex: Male

DRUGS (18)
  1. VANCOMYCIN [Concomitant]
     Dosage: FREQ: DAILY
     Route: 042
     Dates: start: 20110425
  2. IMOVANE [Concomitant]
     Route: 048
  3. TIENAM [Suspect]
     Indication: INFECTION PROPHYLAXIS
     Route: 042
     Dates: start: 20110611
  4. NEORAL [Suspect]
     Indication: INFECTION PROPHYLAXIS
     Route: 048
     Dates: start: 20110501
  5. INNOHEP [Concomitant]
     Dosage: DOSE: 14000 IU.
     Route: 058
  6. AMLODIPINE BESYLATE [Concomitant]
     Dosage: FREQ: DAILY
     Route: 048
  7. VFEND [Suspect]
     Indication: INFECTION PROPHYLAXIS
     Route: 048
     Dates: start: 20110425
  8. ACUPAN [Suspect]
     Indication: PAIN
     Route: 042
  9. MYCOSTATIN [Concomitant]
     Route: 048
     Dates: start: 20110425
  10. OMEPRAZOLE [Concomitant]
     Dosage: FREQ: DAILY
     Route: 048
     Dates: start: 20110528
  11. URSOLVAN [Concomitant]
     Dosage: DOSE: 200
     Route: 048
     Dates: start: 20110503
  12. CELLCEPT [Suspect]
     Indication: STEM CELL TRANSPLANT
     Dosage: DOSE: 500MG
     Route: 048
     Dates: start: 20110501
  13. KIOVIG [Concomitant]
     Route: 042
  14. PENTACARINAT [Concomitant]
     Route: 055
  15. GANCICLOVIR SODIUM [Suspect]
     Indication: INFECTION PROPHYLAXIS
     Route: 042
  16. GELOX [Concomitant]
     Route: 048
  17. IDARAC [Concomitant]
     Route: 048
  18. CIPROFLOXACIN [Suspect]
     Indication: INFECTION PROPHYLAXIS
     Dosage: DOSE: 2MG/2ML
     Route: 042
     Dates: start: 20110611

REACTIONS (1)
  - PETIT MAL EPILEPSY [None]
